FAERS Safety Report 17199310 (Version 2)
Quarter: 2020Q1

REPORT INFORMATION
  Report Type: Report from Study
  Country: BR (occurrence: BR)
  Receive Date: 20191225
  Receipt Date: 20200131
  Transmission Date: 20200409
  Serious: Yes (Hospitalization, Other)
  Sender: FDA-Public Use
  Company Number: NVSC2019BR076723

PATIENT
  Sex: Female
  Weight: 64 kg

DRUGS (1)
  1. EXELON [Suspect]
     Active Substance: RIVASTIGMINE TARTRATE
     Indication: DEMENTIA
     Dosage: UNK ,STARTED ABOUT 3 YEARS AGO
     Route: 062

REACTIONS (3)
  - Pneumonia [Recovered/Resolved]
  - Cerebrovascular accident [Unknown]
  - Aspiration [Unknown]

NARRATIVE: CASE EVENT DATE: 2018
